FAERS Safety Report 7770429-2 (Version None)
Quarter: 2011Q3

REPORT INFORMATION
  Report Type: 
  Country: None (occurrence: None)
  Receive Date: 20110922
  Receipt Date: 20110222
  Transmission Date: 20111222
  Serious: No
  Sender: FDA-Public Use
  Company Number: US-ASTRAZENECA-2011SE10012

PATIENT
  Age: 32 Year
  Sex: Male
  Weight: 56.7 kg

DRUGS (2)
  1. BUSPAR [Concomitant]
  2. SEROQUEL [Suspect]
     Indication: BIPOLAR DISORDER
     Route: 048

REACTIONS (1)
  - DRUG SCREEN POSITIVE [None]
